FAERS Safety Report 8549047-4 (Version None)
Quarter: 2012Q3

REPORT INFORMATION
  Report Type: 
  Country: None (occurrence: None)
  Receive Date: 20120730
  Receipt Date: 20120725
  Transmission Date: 20120928
  Serious: No
  Sender: FDA-Public Use
  Company Number: US-PFIZER INC-2012180082

PATIENT
  Sex: Male

DRUGS (1)
  1. INLYTA [Suspect]
     Indication: RENAL CANCER
     Dosage: 5 MG, 2X/DAY (ONE TAB)
     Dates: start: 20120701

REACTIONS (3)
  - FATIGUE [None]
  - BLOOD PRESSURE INCREASED [None]
  - DYSPHONIA [None]
